FAERS Safety Report 11074765 (Version 2)
Quarter: 2015Q2

REPORT INFORMATION
  Report Type: Spontaneous
  Country: US (occurrence: US)
  Receive Date: 20150429
  Receipt Date: 20150526
  Transmission Date: 20150821
  Serious: Yes (Other)
  Sender: FDA-Public Use
  Company Number: US-MALLINCKRODT-T201502078

PATIENT
  Age: 36 Year
  Sex: Male

DRUGS (2)
  1. VALUS [Concomitant]
  2. GABLOFEN [Suspect]
     Active Substance: BACLOFEN
     Indication: MUSCLE SPASTICITY
     Dosage: 348.4 MCG/DAY
     Route: 037

REACTIONS (6)
  - Hypotension [Recovered/Resolved]
  - Ileus [Recovered/Resolved]
  - Muscle spasms [Recovered/Resolved]
  - Underdose [Recovered/Resolved]
  - Autonomic dysreflexia [Recovered/Resolved]
  - Pneumonia [Recovered/Resolved]

NARRATIVE: CASE EVENT DATE: 20150410
